FAERS Safety Report 15146269 (Version 1)
Quarter: 2018Q3

REPORT INFORMATION
  Report Type: Spontaneous
  Country: US (occurrence: US)
  Receive Date: 20180715
  Receipt Date: 20180715
  Transmission Date: 20181010
  Serious: Yes (Hospitalization, Other)
  Sender: FDA-Public Use
  Company Number: US-JNJFOC-20180703017

PATIENT
  Age: 74 Year
  Sex: Male

DRUGS (10)
  1. DORZOLAMIDE [Concomitant]
     Active Substance: DORZOLAMIDE
  2. IMBRUVICA [Suspect]
     Active Substance: IBRUTINIB
     Indication: MARGINAL ZONE LYMPHOMA
     Route: 048
     Dates: start: 20180423
  3. COLCHICINE. [Concomitant]
     Active Substance: COLCHICINE
  4. METFORMIN [Concomitant]
     Active Substance: METFORMIN HYDROCHLORIDE
  5. SIMVASTATIN. [Concomitant]
     Active Substance: SIMVASTATIN
  6. CYANOCOBALAMIN. [Concomitant]
     Active Substance: CYANOCOBALAMIN
  7. ATENOLOL. [Concomitant]
     Active Substance: ATENOLOL
  8. TRAVATAN [Concomitant]
     Active Substance: TRAVOPROST
  9. ELIQUIS [Concomitant]
     Active Substance: APIXABAN
  10. GLIPIZIDE. [Concomitant]
     Active Substance: GLIPIZIDE

REACTIONS (1)
  - Pneumonia parainfluenzae viral [Unknown]

NARRATIVE: CASE EVENT DATE: 20180527
